FAERS Safety Report 6201976-2 (Version None)
Quarter: 2009Q2

REPORT INFORMATION
  Report Type: 
  Country: None (occurrence: None)
  Receive Date: 20090526
  Receipt Date: 20090519
  Transmission Date: 20091009
  Serious: Yes (Hospitalization)
  Sender: FDA-Public Use
  Company Number: A0784908A

PATIENT
  Age: 62 Year
  Sex: Male
  Weight: 73.6 kg

DRUGS (5)
  1. LAMOTRIGINE [Suspect]
     Indication: BIPOLAR DISORDER
     Dosage: 25MG PER DAY
     Route: 048
     Dates: start: 20090427
  2. METHADONE [Concomitant]
     Indication: PAIN
     Dosage: 30MG PER DAY
     Route: 048
     Dates: start: 20040101
  3. ATIVAN [Concomitant]
     Indication: ANXIETY
     Dosage: .5MG FOUR TIMES PER DAY
     Route: 048
     Dates: start: 20090427
  4. CLONAZEPAM [Concomitant]
     Indication: ANXIETY
     Dosage: .5MG TWICE PER DAY
  5. ALPRAZOLAM [Concomitant]
     Indication: ANXIETY
     Dosage: .5MG PER DAY

REACTIONS (3)
  - AGITATION [None]
  - ANXIETY [None]
  - DIZZINESS [None]
